FAERS Safety Report 24918540 (Version 2)
Quarter: 2025Q4

REPORT INFORMATION
  Report Type: Report from Study
  Country: EU (occurrence: EU)
  Receive Date: 20250203
  Receipt Date: 20251013
  Transmission Date: 20260117
  Serious: Yes (Death, Other)
  Sender: ABBVIE
  Company Number: EU-ABBVIE-5752731

PATIENT
  Sex: Male

DRUGS (10)
  1. FOSCARBIDOPA\FOSLEVODOPA [Suspect]
     Active Substance: FOSCARBIDOPA\FOSLEVODOPA
     Indication: Parkinson^s disease
     Dosage: CR 0.39 ML/H; CR HIGH 0.41 ML/H; CR LOW 0.17 ML/H; ED 0.15 ML
     Route: 058
     Dates: start: 20240409
  2. FOSCARBIDOPA\FOSLEVODOPA [Suspect]
     Active Substance: FOSCARBIDOPA\FOSLEVODOPA
     Dosage: CR 0.39ML/H; CR HIGH 0.41 ML/H; CR LOW 0.18 ML/H; ED 0.15 ML
     Route: 058
  3. FOSCARBIDOPA\FOSLEVODOPA [Suspect]
     Active Substance: FOSCARBIDOPA\FOSLEVODOPA
     Dosage: CR 0.39 ML/H; CR HIGH 0.41 ML/H; CR LOW 0.20 ML/H; ED 0.20 ML.
     Route: 058
     Dates: end: 20250919
  4. REQUIP [Concomitant]
     Active Substance: ROPINIROLE HYDROCHLORIDE
     Indication: Product used for unknown indication
     Dosage: STRENGTH: 10 MG
  5. FOLIC ACID [Concomitant]
     Active Substance: FOLIC ACID
     Indication: Product used for unknown indication
     Dosage: STRENGTH: 5 MG
  6. DETRUSITOL [Concomitant]
     Active Substance: TOLTERODINE TARTRATE
     Indication: Product used for unknown indication
     Dosage: STRENGTH: 2 MG
  7. MIRABEGRON [Concomitant]
     Active Substance: MIRABEGRON
     Indication: Product used for unknown indication
     Dosage: STRENGTH: 50 MG
  8. QUETIAPINE [Concomitant]
     Active Substance: QUETIAPINE
     Indication: Product used for unknown indication
     Dosage: STRENGTH: 25 MG
  9. METHIMAZOLE [Concomitant]
     Active Substance: METHIMAZOLE
     Indication: Product used for unknown indication
     Dosage: STRENGTH: 20 MG
  10. LYRICA [Concomitant]
     Active Substance: PREGABALIN
     Indication: Product used for unknown indication
     Dosage: STRENGTH: 50 MG

REACTIONS (2)
  - Prostate cancer [Fatal]
  - Prostatic specific antigen increased [Not Recovered/Not Resolved]
